FAERS Safety Report 23475018 (Version 1)
Quarter: 2024Q1

REPORT INFORMATION
  Report Type: Report from Study
  Country: US (occurrence: US)
  Receive Date: 20240204
  Receipt Date: 20240204
  Transmission Date: 20240410
  Serious: Yes (Other)
  Sender: FDA-Public Use
  Company Number: US-EXELIXIS-CABO-23070029

PATIENT
  Age: 76 Year
  Sex: Male

DRUGS (12)
  1. CABOMETYX [Suspect]
     Active Substance: CABOZANTINIB S-MALATE
     Indication: Renal cell carcinoma
     Dosage: 60 MG, QD
     Route: 048
     Dates: start: 20200616
  2. CABOMETYX [Suspect]
     Active Substance: CABOZANTINIB S-MALATE
     Dosage: 40 MG, QD
     Route: 048
     Dates: start: 20220211, end: 202310
  3. VOTRIENT [Suspect]
     Active Substance: PAZOPANIB HYDROCHLORIDE
     Indication: Renal cell carcinoma
     Dosage: UNK
     Dates: start: 20231104
  4. XARELTO [Concomitant]
     Active Substance: RIVAROXABAN
  5. MAGNESIUM [Concomitant]
     Active Substance: MAGNESIUM
  6. LOSARTAN [Concomitant]
     Active Substance: LOSARTAN
  7. TRESIBA [Concomitant]
     Active Substance: INSULIN DEGLUDEC
  8. IMODIUM [Concomitant]
     Active Substance: LOPERAMIDE HYDROCHLORIDE
  9. NOVOLOG [Concomitant]
     Active Substance: INSULIN ASPART
  10. KEPPRA [Concomitant]
     Active Substance: LEVETIRACETAM
  11. MEGESTROL [Concomitant]
     Active Substance: MEGESTROL
  12. DRONABINOL [Concomitant]
     Active Substance: DRONABINOL

REACTIONS (5)
  - Malignant neoplasm progression [Unknown]
  - Stomatitis [Unknown]
  - Drug ineffective [Unknown]
  - Blood pressure decreased [Unknown]
  - Decreased appetite [Unknown]

NARRATIVE: CASE EVENT DATE: 20231001
